FAERS Safety Report 25341389 (Version 1)
Quarter: 2025Q2

REPORT INFORMATION
  Report Type: Spontaneous
  Country: US (occurrence: US)
  Receive Date: 20250521
  Receipt Date: 20250521
  Transmission Date: 20250716
  Serious: Yes (Death, Life-Threatening, Other)
  Sender: GLAND PHARMA LTD
  Company Number: US-GLANDPHARMA-US-2025GLNLIT01284

PATIENT
  Age: 53 Year
  Sex: Female

DRUGS (3)
  1. FLUOROURACIL [Suspect]
     Active Substance: FLUOROURACIL
     Indication: Colorectal adenocarcinoma
     Route: 065
  2. OXALIPLATIN [Concomitant]
     Active Substance: OXALIPLATIN
     Route: 065
  3. LEUCOVORIN [Concomitant]
     Active Substance: LEUCOVORIN\LEUCOVORIN CALCIUM
     Route: 065

REACTIONS (11)
  - Necrotising fasciitis [Fatal]
  - Septic shock [Fatal]
  - Oesophageal candidiasis [Unknown]
  - Stevens-Johnson syndrome [Unknown]
  - Toxicity to various agents [Unknown]
  - Mucosal inflammation [Unknown]
  - Neutropenia [Unknown]
  - Odynophagia [Unknown]
  - Symmetrical drug-related intertriginous and flexural exanthema [Unknown]
  - Condition aggravated [Unknown]
  - Diarrhoea [Unknown]
